FAERS Safety Report 7263870-8 (Version None)
Quarter: 2011Q1

REPORT INFORMATION
  Report Type: 
  Country: None (occurrence: None)
  Receive Date: 20110130
  Receipt Date: 20101229
  Transmission Date: 20110831
  Serious: No
  Sender: FDA-Public Use
  Company Number: US-ABBOTT-10P-163-0690064-00

PATIENT
  Age: 82 Year
  Sex: Male

DRUGS (8)
  1. HUMIRA [Suspect]
     Indication: COLITIS ULCERATIVE
     Dates: start: 20101120
  2. BALSALAZIDE DISODIUM [Concomitant]
     Indication: COLITIS ULCERATIVE
     Dosage: 750MG-9 TABLETS TID
  3. HUMIRA [Suspect]
     Indication: CROHN'S DISEASE
  4. DIGOXIN [Concomitant]
     Indication: ARRHYTHMIA
  5. CORTEG [Concomitant]
     Indication: BLOOD PRESSURE
  6. GLIMEPIRIDE [Concomitant]
     Indication: DIABETES MELLITUS
  7. WARFARIN [Concomitant]
     Indication: CARDIAC PACEMAKER INSERTION
     Dosage: DAILY EXCEPT SUNDAY AND WEDNESDAY
  8. OMEPRAZOLE [Concomitant]
     Indication: GASTROOESOPHAGEAL REFLUX DISEASE

REACTIONS (3)
  - RASH PRURITIC [None]
  - RASH MACULAR [None]
  - DRUG INEFFECTIVE [None]
